FAERS Safety Report 25922309 (Version 3)
Quarter: 2025Q4

REPORT INFORMATION
  Report Type: Report from Study
  Country: US (occurrence: US)
  Receive Date: 20251015
  Receipt Date: 20251124
  Transmission Date: 20260118
  Serious: Yes (Other)
  Sender: ABBVIE
  Company Number: US-ABBVIE-6502081

PATIENT
  Age: 44 Year
  Sex: Female

DRUGS (18)
  1. SKYRIZI [Suspect]
     Active Substance: RISANKIZUMAB-RZAA
     Indication: Crohn^s disease
     Route: 058
     Dates: start: 20250521
  2. VITAMIN D3 [Concomitant]
     Active Substance: CHOLECALCIFEROL
     Indication: Product used for unknown indication
     Dosage: CALCIUM (AS CITRATE)?250 MG-12.5 MCG (500 INTL UNITS)?CHEWABLE 2 TABLET
     Route: 048
  3. CYANOCOBALAMIN [Concomitant]
     Active Substance: CYANOCOBALAMIN
     Indication: Product used for unknown indication
     Dosage: 1000 MCG/ML INJECTABLE SOLUTION, 1,000 MCG, IM, EVERY MONTH,?INJECT 1 ML INTRAMUSCULARLY EVERY MONTH
  4. FLUOXETINE [Concomitant]
     Active Substance: FLUOXETINE HYDROCHLORIDE
     Indication: Product used for unknown indication
     Dosage: DOSAGE: 20 MG/ML 40 MG = 10 ML
     Route: 048
  5. ONDANSETRON [Concomitant]
     Active Substance: ONDANSETRON
     Indication: Product used for unknown indication
     Dosage: 4 MG = 1 TABLET, ORALLY, Q8H
     Route: 048
  6. PREVACID [Concomitant]
     Active Substance: LANSOPRAZOLE
     Indication: Product used for unknown indication
     Dosage: DELAYED RELEASE CAPSULE?30 MG = 1 CAPSULE, ORALLY
     Route: 048
  7. SHINGRIX [Concomitant]
     Active Substance: RECOMBINANT VARICELLA ZOSTER VIRUS (VZV) GLYCOPROTEIN E
     Indication: Product used for unknown indication
     Dosage: INTRAMUSCULAR INJECTION?0.5 ML, IM, ONCE, TO BE GIVEN AT THE?PHARMACYREPEAT DOSE IN 2 TO 6 MONTHS
  8. NORCO [Concomitant]
     Active Substance: ACETAMINOPHEN\HYDROCODONE BITARTRATE
     Indication: Product used for unknown indication
     Dosage: 7.5 MG-325 MG, 1 TABLET
     Route: 048
  9. VANCOMYCIN [Concomitant]
     Active Substance: VANCOMYCIN
     Indication: Skin infection
     Dosage: INTRAVENOUS PIGGYBAC?FOR: SSTI - CELLULITIS/BITES
  10. ZOSYN [Concomitant]
     Active Substance: PIPERACILLIN SODIUM\TAZOBACTAM SODIUM
     Indication: Abdominal infection
     Dosage: 3.375 GM, IV PUSH
  11. SODIUM CHLORIDE [Concomitant]
     Active Substance: SODIUM CHLORIDE
     Indication: Product used for unknown indication
     Dosage: 1000 ML, IV CONTINUOUS
  12. ACETAMINOPHEN [Concomitant]
     Active Substance: ACETAMINOPHEN
     Indication: Product used for unknown indication
     Dosage: 1,000 MG = 2 TABLET
     Route: 048
  13. VITAMIN B12 [Concomitant]
     Active Substance: CYANOCOBALAMIN
     Indication: Product used for unknown indication
     Dosage: SYRINGES?3 ML, OTHER, EVERY MONTH, 3 ML WITH ATTACHED 21 GAUGE 1 INCH?NEEDLE
  14. ZOFRAN [Concomitant]
     Active Substance: ONDANSETRON HYDROCHLORIDE
     Indication: Nausea
     Dosage: 4 MG = 1 TABLET, ORALLY, Q12H, AS NEEDED TWO TIMES A DAY
     Route: 048
  15. ZYRTEC-D ALLERGY AND CONGESTION [Concomitant]
     Active Substance: CETIRIZINE HYDROCHLORIDE\PSEUDOEPHEDRINE HYDROCHLORIDE
     Indication: Product used for unknown indication
     Dosage: 5 MG-120 MG?1 TABLET, ORALLY, BID
     Route: 048
  16. MORPHINE [Concomitant]
     Active Substance: MORPHINE
     Indication: Product used for unknown indication
     Dosage: IV PUSH
  17. ACETAMINOPHEN\HYDROCODONE [Concomitant]
     Active Substance: ACETAMINOPHEN\HYDROCODONE
     Indication: Pain
     Dosage: PRN AS NEEDED FOR PAIN, FOR 5 DAYS, ACUTE, DISPENSE: 8 TABLET, REFILLS: 0, TOTAL REFILLS: 0, PRIN...
     Route: 048
  18. AMOXICILLIN\CLAVULANIC ACID [Concomitant]
     Active Substance: AMOXICILLIN\CLAVULANIC ACID
     Indication: Product used for unknown indication
     Dosage: FOR 7 DAYS, ACUTE, DISPENSE: 14 TABLET, REFILLS: 0, TOTAL REFILLS: 0, 09/22/25 19:21:00 EDT, 09/2...
     Route: 048

REACTIONS (3)
  - Stoma site abscess [Recovered/Resolved]
  - Stoma site pain [Unknown]
  - Stoma site induration [Unknown]

NARRATIVE: CASE EVENT DATE: 20250101
